FAERS Safety Report 24580840 (Version 1)
Quarter: 2024Q4

REPORT INFORMATION
  Report Type: Report from Study
  Country: CA (occurrence: CA)
  Receive Date: 20241105
  Receipt Date: 20241105
  Transmission Date: 20250115
  Serious: Yes (Other)
  Sender: SANDOZ
  Company Number: CA-SANDOZ-NVSC2022CA243571

PATIENT
  Sex: Female

DRUGS (2)
  1. HYRIMOZ [Suspect]
     Active Substance: ADALIMUMAB-ADAZ
     Indication: Crohn^s disease
     Dosage: 40 MG, Q2W
     Route: 058
     Dates: start: 20220530
  2. HYRIMOZ [Suspect]
     Active Substance: ADALIMUMAB-ADAZ
     Dosage: 40 MG, Q2W
     Route: 058
     Dates: start: 20221015

REACTIONS (15)
  - Polyp [Unknown]
  - Joint injury [Unknown]
  - Renal disorder [Unknown]
  - Anal fissure [Unknown]
  - Joint swelling [Unknown]
  - Buttock injury [Unknown]
  - Limb mass [Unknown]
  - Dry eye [Unknown]
  - Lacrimation increased [Unknown]
  - Feeling abnormal [Unknown]
  - Abnormal faeces [Unknown]
  - General physical health deterioration [Unknown]
  - Diarrhoea [Unknown]
  - Drug ineffective [Unknown]
  - Wrong technique in product usage process [Unknown]
